FAERS Safety Report 6159899-3 (Version None)
Quarter: 2009Q2

REPORT INFORMATION
  Report Type: 
  Country: None (occurrence: None)
  Receive Date: 20090420
  Receipt Date: 20090206
  Transmission Date: 20091009
  Serious: Yes (Other)
  Sender: FDA-Public Use
  Company Number: GB-PFIZER INC-2009160617

PATIENT
  Age: 50 Year
  Sex: Male

DRUGS (1)
  1. AMLODIPINE BESILATE [Suspect]
     Indication: HYPERTENSION

REACTIONS (3)
  - HAEMATOSPERMIA [None]
  - HAEMATURIA [None]
  - SCHAMBERG'S DISEASE [None]
